FAERS Safety Report 8139477-7 (Version None)
Quarter: 2012Q1

REPORT INFORMATION
  Report Type: 
  Country: None (occurrence: None)
  Receive Date: 20120215
  Receipt Date: 20120203
  Transmission Date: 20120608
  Serious: Yes (Other)
  Sender: FDA-Public Use
  Company Number: US-PFIZER INC-2011072259

PATIENT
  Sex: Male
  Weight: 82 kg

DRUGS (6)
  1. LOMOTIL [Concomitant]
     Indication: DIARRHOEA
     Dosage: 2 TAB, AS NEEDED
     Route: 048
     Dates: start: 20110302
  2. IMODIUM A-D [Concomitant]
     Indication: DIARRHOEA
     Dosage: 4-8 MG, AS NEEDED
     Route: 048
     Dates: start: 20110302
  3. PF-00299804 [Suspect]
     Indication: NON-SMALL CELL LUNG CANCER
     Dosage: 30 MG, 1X/DAY
     Route: 048
     Dates: start: 20110302, end: 20110329
  4. ARIXTRA [Concomitant]
     Indication: DEEP VEIN THROMBOSIS
     Dosage: 7.5 MG, 1X/DAY
     Route: 058
     Dates: start: 20100726
  5. CLINDAMYCIN [Concomitant]
     Indication: RASH
     Dosage: 1 APPLICATION, 2X/DAY
     Route: 061
     Dates: start: 20100818
  6. CRIZOTINIB [Suspect]
     Indication: NON-SMALL CELL LUNG CANCER
     Dosage: 200 MG, 2X/DAY
     Route: 048
     Dates: start: 20110302, end: 20110329

REACTIONS (1)
  - HYPERURICAEMIA [None]
